FAERS Safety Report 15937880 (Version 1)
Quarter: 2019Q1

REPORT INFORMATION
  Report Type: Spontaneous
  Country: US (occurrence: US)
  Receive Date: 20190208
  Receipt Date: 20190208
  Transmission Date: 20190417
  Serious: No
  Sender: FDA-Public Use
  Company Number: US-ROCHE-2167102

PATIENT
  Sex: Female

DRUGS (1)
  1. XOLAIR [Suspect]
     Active Substance: OMALIZUMAB
     Indication: ASTHMA
     Dosage: INJECT 225 MG SUBCUTANEOUSLY EVERY TWO WEEKS?XOLAIR 150MG VIAL INJECTION
     Route: 058

REACTIONS (1)
  - Vision blurred [Not Recovered/Not Resolved]
